FAERS Safety Report 21004164 (Version 1)
Quarter: 2022Q2

REPORT INFORMATION
  Report Type: Report from Study
  Country: US (occurrence: US)
  Receive Date: 20220624
  Receipt Date: 20220624
  Transmission Date: 20220721
  Serious: Yes (Life-Threatening, Hospitalization, Other)
  Sender: FDA-Public Use
  Company Number: US-EXELIXIS-XL18421046737

PATIENT
  Age: 74 Year
  Sex: Female
  Weight: 107 kg

DRUGS (2)
  1. PLACEBO [Suspect]
     Active Substance: UNSPECIFIED INGREDIENT
     Indication: Pancreatic neuroendocrine tumour
     Dosage: 60 MG, QD
     Route: 048
     Dates: start: 20210915, end: 20211022
  2. CABOZANTINIB [Suspect]
     Active Substance: CABOZANTINIB
     Indication: Pancreatic neuroendocrine tumour
     Dosage: 60 MG, QD
     Route: 048
     Dates: start: 20210915, end: 20211022

REACTIONS (3)
  - Hypoxia [Recovered/Resolved]
  - Pulmonary embolism [Recovered/Resolved]
  - Hypertension [Recovered/Resolved]

NARRATIVE: CASE EVENT DATE: 20211022
